FAERS Safety Report 4649580-1 (Version None)
Quarter: 2005Q2

REPORT INFORMATION
  Report Type: 
  Country: None (occurrence: None)
  Receive Date: 20050428
  Receipt Date: 20050428
  Transmission Date: 20051028
  Serious: No
  Sender: FDA-Public Use
  Company Number: None

PATIENT
  Age: 44 Year
  Sex: Male

DRUGS (3)
  1. ERTAPENEM [Suspect]
     Dosage: 1 GM
     Dates: start: 20050224, end: 20050301
  2. VANCOMYCIN [Concomitant]
  3. INSULIN ASPART [Concomitant]

REACTIONS (3)
  - BLOOD GLUCOSE DECREASED [None]
  - LIVER FUNCTION TEST ABNORMAL [None]
  - PYREXIA [None]
